FAERS Safety Report 19594915 (Version 1)
Quarter: 2021Q3

REPORT INFORMATION
  Report Type: Spontaneous
  Country: CA (occurrence: CA)
  Receive Date: 20210722
  Receipt Date: 20210722
  Transmission Date: 20211014
  Serious: Yes (Other)
  Sender: FDA-Public Use
  Company Number: CA-PFIZER INC-2021899931

PATIENT
  Age: 50 Year
  Sex: Male

DRUGS (2)
  1. CALCIUM CHLORIDE. [Suspect]
     Active Substance: CALCIUM CHLORIDE
     Indication: PULMONARY ARTERIAL WEDGE PRESSURE INCREASED
  2. CALCIUM CHLORIDE. [Suspect]
     Active Substance: CALCIUM CHLORIDE
     Indication: HYPOTENSION
     Dosage: 1 MG

REACTIONS (1)
  - Prinzmetal angina [Unknown]
